FAERS Safety Report 5406481-9 (Version None)
Quarter: 2007Q3

REPORT INFORMATION
  Report Type: 
  Country: None (occurrence: None)
  Receive Date: 20070806
  Receipt Date: 20070724
  Transmission Date: 20080115
  Serious: Yes (Hospitalization, Other)
  Sender: FDA-Public Use
  Company Number: US-ELI_LILLY_AND_COMPANY-US200707006543

PATIENT
  Age: 49 Year
  Sex: Female
  Weight: 82.993 kg

DRUGS (3)
  1. LISPRO 25LIS75NPL [Suspect]
     Indication: TYPE 2 DIABETES MELLITUS
     Dosage: 36 IU, DAILY (1/D)
     Route: 058
     Dates: start: 20070614
  2. METFORMIN HCL [Concomitant]
  3. GLYBURIDE [Concomitant]

REACTIONS (3)
  - DEHYDRATION [None]
  - TYPE 2 DIABETES MELLITUS [None]
  - VOMITING [None]
